FAERS Safety Report 7617920-7 (Version None)
Quarter: 2011Q3

REPORT INFORMATION
  Report Type: 
  Country: None (occurrence: None)
  Receive Date: 20110718
  Receipt Date: 20110701
  Transmission Date: 20111222
  Serious: Yes (Hospitalization)
  Sender: FDA-Public Use
  Company Number: PHHY2011BR59270

PATIENT
  Age: 82 Year
  Sex: Male

DRUGS (2)
  1. DIOVAN [Suspect]
     Dosage: 4 DF(FOR 2 IN THE MORNING AND 2 AT NIGHT)
  2. DIOVAN [Suspect]
     Indication: HYPERTENSION
     Dosage: 3 DF (2 TABLETS IN MORNING, 1 TABLET AT NIGHT)
     Route: 048

REACTIONS (4)
  - MYOCARDIAL INFARCTION [None]
  - BLOOD PRESSURE INCREASED [None]
  - NERVOUSNESS [None]
  - FEELING ABNORMAL [None]
